FAERS Safety Report 9567450 (Version 2)
Quarter: 2013Q3

REPORT INFORMATION
  Report Type: Spontaneous
  Country: US (occurrence: US)
  Receive Date: 20130930
  Receipt Date: 20130930
  Transmission Date: 20140515
  Serious: No
  Sender: FDA-Public Use
  Company Number: US-AMGEN-USASP2012062282

PATIENT
  Age: 59 Year
  Sex: Female

DRUGS (10)
  1. ENBREL [Suspect]
     Indication: PSORIASIS
     Dosage: 50 MG, 2 TIMES/WK
     Dates: start: 20120522
  2. ALEVE [Concomitant]
     Dosage: 220 MG, UNK
  3. CLARITIN                           /00413701/ [Concomitant]
     Dosage: 10 MG, UNK
  4. HYDROCHLOROTHIAZIDE [Concomitant]
     Dosage: 25 MG
  5. LOPRESSOR [Concomitant]
     Dosage: 100 MG, UNK
  6. ZOLOFT [Concomitant]
     Dosage: 50 MG, UNK
  7. HYDROXYZINE                        /00058402/ [Concomitant]
     Dosage: 25 MG, TABLETS NIGHTLY
  8. CITALOPRAM                         /00582602/ [Concomitant]
     Dosage: 10 MG, UNK
  9. GLUCOSAMINE [Concomitant]
     Dosage: 500 MG, UNK
  10. PROBIOTIC ACIDOPHILUS [Concomitant]
     Dosage: 300-250 MILLION CELL-MG

REACTIONS (5)
  - Blood glucose increased [Not Recovered/Not Resolved]
  - White blood cell count increased [Not Recovered/Not Resolved]
  - Eosinophil count increased [Not Recovered/Not Resolved]
  - Drug ineffective [Not Recovered/Not Resolved]
  - Psoriasis [Not Recovered/Not Resolved]
